FAERS Safety Report 7549490-6 (Version None)
Quarter: 2011Q2

REPORT INFORMATION
  Report Type: 
  Country: None (occurrence: None)
  Receive Date: 20110615
  Receipt Date: 20041101
  Transmission Date: 20111010
  Serious: Yes (Hospitalization, Other)
  Sender: FDA-Public Use
  Company Number: PHFR2004GB03392

PATIENT
  Sex: Female

DRUGS (6)
  1. ACETAMINOPHEN [Suspect]
     Dosage: 64 X 500MG OVERDOSE
     Route: 048
     Dates: start: 20040828
  2. CLOZAPINE [Suspect]
     Route: 048
     Dates: start: 20040630, end: 20041022
  3. ACETAMINOPHEN [Suspect]
     Dosage: AMOUNT UNKNOWN
     Route: 048
     Dates: start: 20041022
  4. HALOPERIDOL [Concomitant]
  5. LORAZEPAM [Concomitant]
  6. OMEPRAZOLE [Concomitant]

REACTIONS (6)
  - OVERDOSE [None]
  - BLOOD ALKALINE PHOSPHATASE INCREASED [None]
  - LIVER FUNCTION TEST ABNORMAL [None]
  - VOMITING [None]
  - FEAR [None]
  - ALANINE AMINOTRANSFERASE INCREASED [None]
